FAERS Safety Report 25196856 (Version 3)
Quarter: 2025Q2

REPORT INFORMATION
  Report Type: Spontaneous
  Country: US (occurrence: US)
  Receive Date: 20250415
  Receipt Date: 20250624
  Transmission Date: 20250717
  Serious: Yes (Hospitalization)
  Sender: ARDELYX
  Company Number: US-ARDELYX-2025ARDX002342

PATIENT
  Age: 51 Year
  Sex: Female

DRUGS (3)
  1. IBSRELA [Suspect]
     Active Substance: TENAPANOR HYDROCHLORIDE
     Indication: Gastrointestinal motility disorder
     Route: 065
     Dates: start: 2024, end: 20250211
  2. IBSRELA [Suspect]
     Active Substance: TENAPANOR HYDROCHLORIDE
     Indication: Constipation
     Route: 065
     Dates: start: 20250211, end: 20250320
  3. MOTEGRITY [Concomitant]
     Active Substance: PRUCALOPRIDE SUCCINATE
     Indication: Functional gastrointestinal disorder
     Route: 065

REACTIONS (7)
  - Abdominal distension [Unknown]
  - Colectomy [Recovered/Resolved]
  - Ileostomy [Unknown]
  - Gastrointestinal motility disorder [Unknown]
  - Intentional dose omission [Unknown]
  - Off label use [Unknown]
  - Laboratory test abnormal [Unknown]

NARRATIVE: CASE EVENT DATE: 20250320
